FAERS Safety Report 9376505 (Version 1)
Quarter: 2013Q2

REPORT INFORMATION
  Report Type: Spontaneous
  Country: US (occurrence: None)
  Receive Date: 20130628
  Receipt Date: 20130628
  Transmission Date: 20140414
  Serious: No
  Sender: FDA-Public Use
  Company Number: None

PATIENT
  Age: 51 Year
  Sex: Female
  Weight: 55.79 kg

DRUGS (1)
  1. PROGESTERONE [Suspect]
     Route: 048
     Dates: start: 20130401, end: 20130627

REACTIONS (3)
  - Aura [None]
  - Confusional state [None]
  - Delirium [None]
